FAERS Safety Report 20189733 (Version 2)
Quarter: 2022Q1

REPORT INFORMATION
  Report Type: Spontaneous
  Country: PT (occurrence: PT)
  Receive Date: 20211215
  Receipt Date: 20220201
  Transmission Date: 20220423
  Serious: Yes (Other)
  Sender: FDA-Public Use
  Company Number: PT-002147023-NVSC2021PT284044

PATIENT

DRUGS (1)
  1. RUXOLITINIB [Suspect]
     Active Substance: RUXOLITINIB
     Indication: Polycythaemia vera
     Dosage: 10 MG, BID (2X PER DAY)
     Route: 065
     Dates: start: 201901

REACTIONS (7)
  - Bowen^s disease [Unknown]
  - Second primary malignancy [Unknown]
  - Skin cancer [Unknown]
  - Blood cholesterol increased [Unknown]
  - Skin injury [Unknown]
  - Pain [Unknown]
  - Urinary tract infection [Unknown]
